FAERS Safety Report 23550705 (Version 1)
Quarter: 2024Q1

REPORT INFORMATION
  Report Type: Spontaneous
  Country: AU (occurrence: AU)
  Receive Date: 20240221
  Receipt Date: 20240221
  Transmission Date: 20240409
  Serious: Yes (Other)
  Sender: FDA-Public Use
  Company Number: AU-009507513-2402AUS005504

PATIENT
  Age: 52 Year
  Sex: Female

DRUGS (3)
  1. PEMBROLIZUMAB [Suspect]
     Active Substance: PEMBROLIZUMAB
     Indication: Triple negative breast cancer
  2. CARBOPLATIN [Suspect]
     Active Substance: CARBOPLATIN
     Indication: Triple negative breast cancer
  3. GEMCITABINE [Suspect]
     Active Substance: GEMCITABINE
     Indication: Triple negative breast cancer

REACTIONS (4)
  - Thrombocytopenia [Unknown]
  - Skin lesion [Recovering/Resolving]
  - Thyroiditis [Unknown]
  - Palliative care [Recovered/Resolved]

NARRATIVE: CASE EVENT DATE: 20231201
